FAERS Safety Report 9032257 (Version 2)
Quarter: 2013Q1

REPORT INFORMATION
  Report Type: Report from Study
  Country: US (occurrence: US)
  Receive Date: 20130122
  Receipt Date: 20130128
  Transmission Date: 20140127
  Serious: No
  Sender: FDA-Public Use
  Company Number: US-VERTEX PHARMACEUTICALS INC.-2013-000849

PATIENT
  Age: 54 Year
  Sex: Male
  Weight: 86 kg

DRUGS (5)
  1. VX-950 (TELAPREVIR) [Suspect]
     Indication: HEPATITIS C
     Dosage: 750 MG, TID
     Route: 048
     Dates: start: 20130111
  2. VITAMIN B12 [Concomitant]
     Dosage: 1000 CR
  3. BABY ASPIRIN [Concomitant]
     Dosage: 81 MG, UNK
  4. LEVOTHYROXIN [Concomitant]
     Dosage: 200 ?G, UNK
  5. VIIBRYD [Concomitant]
     Dosage: 10 MG, UNK

REACTIONS (3)
  - Headache [Unknown]
  - Abdominal discomfort [Unknown]
  - Hyperbilirubinaemia [Unknown]
